FAERS Safety Report 5818948-X (Version None)
Quarter: 2008Q3

REPORT INFORMATION
  Report Type: 
  Country: None (occurrence: None)
  Receive Date: 20080723
  Receipt Date: 20080718
  Transmission Date: 20090109
  Serious: Yes (Hospitalization, Other)
  Sender: FDA-Public Use
  Company Number: US-BAYER-200816805NA

PATIENT
  Age: 24 Year
  Sex: Female
  Weight: 57 kg

DRUGS (3)
  1. YASMIN [Suspect]
     Indication: CONTRACEPTION
     Route: 048
     Dates: start: 20070301, end: 20080101
  2. LEVOXYL [Concomitant]
     Indication: HYPOTHYROIDISM
     Route: 048
  3. CLINDAMYCIN GEL [Concomitant]
     Indication: ACNE
     Route: 061

REACTIONS (2)
  - DEEP VEIN THROMBOSIS [None]
  - PULMONARY EMBOLISM [None]
